FAERS Safety Report 17026738 (Version 1)
Quarter: 2019Q4

REPORT INFORMATION
  Report Type: Spontaneous
  Country: US (occurrence: US)
  Receive Date: 20191112
  Receipt Date: 20191112
  Transmission Date: 20200122
  Serious: Yes (Hospitalization)
  Sender: FDA-Public Use
  Company Number: None

PATIENT
  Age: 70 Year
  Sex: Male

DRUGS (10)
  1. OLUMIANT [Suspect]
     Active Substance: BARICITINIB
     Indication: RHEUMATOID ARTHRITIS
     Route: 048
     Dates: start: 20190807
  2. LEFLUNOMIDE TAB 20 MG [Concomitant]
  3. PRALUENT INJ 75 MG/ML [Concomitant]
  4. DIGOXIN TAB 0.125 MG [Concomitant]
  5. PREVASTATIN TAB 10 MG [Concomitant]
  6. TRAZODONE TAB 50 MG [Concomitant]
  7. VERAPAMIL TAB 240 MG ER [Concomitant]
  8. ELIQUIS TAB 5 MG [Concomitant]
  9. AMIODARONE TAB 200 MG [Concomitant]
  10. BRILINTA TAB 90 MG [Concomitant]

REACTIONS (1)
  - Myocardial infarction [None]
